FAERS Safety Report 4620015-8 (Version None)
Quarter: 2005Q1

REPORT INFORMATION
  Report Type: 
  Country: None (occurrence: None)
  Receive Date: 20050324
  Receipt Date: 20050314
  Transmission Date: 20050727
  Serious: Yes (Death)
  Sender: FDA-Public Use
  Company Number: MK200503-0211-1

PATIENT
  Age: 50 Year
  Sex: Male

DRUGS (1)
  1. OPTIRAY 350 [Suspect]
     Indication: ARTERIOGRAM
     Dosage: 90 ML
     Dates: start: 20050310, end: 20050310

REACTIONS (5)
  - BLISTER [None]
  - LIP EROSION [None]
  - LIP HAEMORRHAGE [None]
  - ORAL MUCOSAL DISORDER [None]
  - STEVENS-JOHNSON SYNDROME [None]
